FAERS Safety Report 9285612 (Version 3)
Quarter: 2013Q2

REPORT INFORMATION
  Report Type: Spontaneous
  Country: ZA (occurrence: ZA)
  Receive Date: 20130513
  Receipt Date: 20130606
  Transmission Date: 20140414
  Serious: Yes (Hospitalization)
  Sender: FDA-Public Use
  Company Number: ZA-SANOFI-AVENTIS-2013SA046879

PATIENT
  Age: 49 Year
  Sex: Male

DRUGS (2)
  1. LANTUS [Suspect]
     Indication: DIABETES MELLITUS
     Route: 058
     Dates: start: 2012
  2. APIDRA [Suspect]
     Indication: DIABETES MELLITUS
     Dosage: FREQUENCY TID: BEFORE MEALS
     Route: 058
     Dates: start: 2012

REACTIONS (3)
  - Hepatitis [Not Recovered/Not Resolved]
  - Blood glucose abnormal [Recovering/Resolving]
  - Drug dose omission [Unknown]
